FAERS Safety Report 13255006 (Version 1)
Quarter: 2017Q1

REPORT INFORMATION
  Report Type: Spontaneous
  Country: US (occurrence: US)
  Receive Date: 20170217
  Receipt Date: 20170217
  Transmission Date: 20170428
  Serious: No
  Sender: FDA-Public Use
  Company Number: None

PATIENT
  Age: 75 Year
  Sex: Female
  Weight: 44.55 kg

DRUGS (1)
  1. FORTEO [Suspect]
     Active Substance: TERIPARATIDE
     Indication: OSTEOPOROSIS
     Dosage: 20 ?G MICROGRAM(S)?
     Route: 058
     Dates: start: 20160324

REACTIONS (1)
  - Fatigue [None]

NARRATIVE: CASE EVENT DATE: 20170217
